FAERS Safety Report 8322460-6 (Version None)
Quarter: 2012Q2

REPORT INFORMATION
  Report Type: 
  Country: None (occurrence: None)
  Receive Date: 20120430
  Receipt Date: 20100201
  Transmission Date: 20120825
  Serious: No
  Sender: FDA-Public Use
  Company Number: US-TEVA-2010000592

PATIENT
  Sex: Female
  Weight: 59.02 kg

DRUGS (5)
  1. NUVIGIL [Suspect]
     Indication: FATIGUE
     Dosage: 150 MILLIGRAM;
  2. LEVOTHYROXINE SODIUM [Concomitant]
     Dates: start: 20081001
  3. CRESTOR [Concomitant]
     Dates: start: 20090101
  4. ZOLOFT [Concomitant]
  5. ATIVAN [Concomitant]
     Dates: start: 20040101

REACTIONS (5)
  - DYSGEUSIA [None]
  - ANXIETY [None]
  - ACCIDENTAL OVERDOSE [None]
  - PANIC ATTACK [None]
  - PARAESTHESIA ORAL [None]
